FAERS Safety Report 24943518 (Version 1)
Quarter: 2025Q1

REPORT INFORMATION
  Report Type: Other
  Country: SA (occurrence: SA)
  Receive Date: 20250207
  Receipt Date: 20250207
  Transmission Date: 20250409
  Serious: Yes (Other)
  Sender: APRECIA PHARMACEUTICALS
  Company Number: SA-ARIS GLOBAL-APRE20250048

PATIENT
  Age: 77 Year
  Sex: Female

DRUGS (2)
  1. LEVETIRACETAM [Suspect]
     Active Substance: LEVETIRACETAM
     Indication: Seizure prophylaxis
     Route: 065
  2. CARBIDOPA\LEVODOPA [Concomitant]
     Active Substance: CARBIDOPA\LEVODOPA
     Indication: Parkinson^s disease

REACTIONS (6)
  - Parkinson^s disease [Recovering/Resolving]
  - Quadriparesis [Recovering/Resolving]
  - Hypertonia [Recovered/Resolved]
  - Resting tremor [Recovered/Resolved]
  - Hyperreflexia [Recovering/Resolving]
  - Depressed level of consciousness [Recovering/Resolving]
